FAERS Safety Report 4489475-X (Version None)
Quarter: 2004Q4

REPORT INFORMATION
  Report Type: 
  Country: None (occurrence: None)
  Receive Date: 20041101
  Receipt Date: 20040908
  Transmission Date: 20050328
  Serious: Yes (Other)
  Sender: FDA-Public Use
  Company Number: PHFR2004GB03439

PATIENT
  Age: 34 Year
  Sex: Male

DRUGS (7)
  1. CLOZARIL [Suspect]
     Indication: SCHIZOPHRENIA
     Route: 048
     Dates: start: 20040430
  2. CLOZARIL [Suspect]
     Dosage: 450 MG/DAY
     Route: 048
     Dates: start: 20040722, end: 20040918
  3. PEPTAC [Concomitant]
     Dosage: 10 MLS/DAY
     Route: 048
  4. PROPRANOLOL [Concomitant]
     Dosage: 80 MG/DAY
     Route: 048
  5. MOVICOL [Concomitant]
     Route: 048
  6. SALBUTAMOL [Concomitant]
     Dosage: UNK, PRN
  7. XYLENE [Suspect]

REACTIONS (9)
  - ATAXIA [None]
  - CONFUSIONAL STATE [None]
  - DRUG INTERACTION [None]
  - DRUG LEVEL INCREASED [None]
  - DYSARTHRIA [None]
  - FACIAL BONES FRACTURE [None]
  - FALL [None]
  - HALLUCINATION, VISUAL [None]
  - SOMNOLENCE [None]
